FAERS Safety Report 21614296 (Version 1)
Quarter: 2022Q4

REPORT INFORMATION
  Report Type: Report from Study
  Country: US (occurrence: US)
  Receive Date: 20221118
  Receipt Date: 20221118
  Transmission Date: 20230113
  Serious: Yes (Other)
  Sender: FDA-Public Use
  Company Number: US-UCBSA-2022065553

PATIENT
  Age: 18 Year
  Sex: Male

DRUGS (1)
  1. FINTEPLA [Suspect]
     Active Substance: FENFLURAMINE
     Indication: Product used for unknown indication
     Dosage: 6 MILLIGRAM, 2X/DAY (BID)

REACTIONS (1)
  - Seizure cluster [Not Recovered/Not Resolved]

NARRATIVE: CASE EVENT DATE: 20221111
